FAERS Safety Report 14200147 (Version 1)
Quarter: 2017Q4

REPORT INFORMATION
  Report Type: Spontaneous
  Country: US (occurrence: US)
  Receive Date: 20171117
  Receipt Date: 20171117
  Transmission Date: 20180321
  Serious: No
  Sender: FDA-Public Use
  Company Number: US-ALVOGEN-2017-ALVOGEN-092266

PATIENT
  Age: 70 Year
  Sex: Male

DRUGS (2)
  1. CARVODIL [Concomitant]
     Indication: CARDIAC DISORDER
  2. LISINOPRIL. [Suspect]
     Active Substance: LISINOPRIL
     Indication: CARDIAC DISORDER

REACTIONS (1)
  - Pleural effusion [Recovered/Resolved]
